FAERS Safety Report 16642700 (Version 19)
Quarter: 2025Q2

REPORT INFORMATION
  Report Type: Spontaneous
  Country: US (occurrence: US)
  Receive Date: 20190729
  Receipt Date: 20250613
  Transmission Date: 20250717
  Serious: Yes (Hospitalization, Other)
  Sender: PFIZER
  Company Number: US-PFIZER INC-2019317497

PATIENT
  Age: 69 Year
  Sex: Female
  Weight: 95 kg

DRUGS (5)
  1. XELJANZ XR [Suspect]
     Active Substance: TOFACITINIB CITRATE
     Indication: Rheumatoid arthritis
     Dosage: 11 MG, 1X/DAY (EVERY MORNING)
     Route: 048
     Dates: start: 20190606
  2. XELJANZ XR [Suspect]
     Active Substance: TOFACITINIB CITRATE
     Dosage: 11 MG, 1X/DAY
     Route: 048
  3. XELJANZ XR [Suspect]
     Active Substance: TOFACITINIB CITRATE
  4. CHOLECALCIFEROL [Concomitant]
     Active Substance: CHOLECALCIFEROL
     Indication: Vitamin supplementation
     Dosage: 50000 IU, WEEKLY (EVERY WEDNESDAY)
     Route: 048
     Dates: start: 201811
  5. CHOLECALCIFEROL [Concomitant]
     Active Substance: CHOLECALCIFEROL
     Dosage: 50000 IU, WEEKLY (EVERY WEDNESDAY)
     Route: 048

REACTIONS (20)
  - Hypertension [Not Recovered/Not Resolved]
  - Knee arthroplasty [Unknown]
  - Back pain [Unknown]
  - Therapeutic product effect incomplete [Unknown]
  - Joint range of motion decreased [Unknown]
  - Arthritis [Unknown]
  - Pain of skin [Unknown]
  - Pain in extremity [Unknown]
  - Musculoskeletal stiffness [Unknown]
  - Pain [Not Recovered/Not Resolved]
  - Gait disturbance [Unknown]
  - Illness [Unknown]
  - Headache [Unknown]
  - Feeling hot [Unknown]
  - Insomnia [Unknown]
  - Condition aggravated [Unknown]
  - Vertigo [Unknown]
  - Memory impairment [Unknown]
  - Stress [Unknown]
  - Product dose omission issue [Unknown]

NARRATIVE: CASE EVENT DATE: 20190728
